FAERS Safety Report 6127235-4 (Version None)
Quarter: 2009Q1

REPORT INFORMATION
  Report Type: 
  Country: None (occurrence: None)
  Receive Date: 20090320
  Receipt Date: 20090310
  Transmission Date: 20090719
  Serious: Yes (Death)
  Sender: FDA-Public Use
  Company Number: US-PFIZER INC-2008071478

PATIENT
  Sex: Female

DRUGS (4)
  1. REVATIO [Suspect]
     Indication: PULMONARY HYPERTENSION
     Dosage: 20 MG, 3X/DAY
  2. BOSENTAN [Concomitant]
  3. EPOPROSTENOL [Concomitant]
  4. ILOPROST [Concomitant]

REACTIONS (1)
  - PULMONARY HYPERTENSION [None]
